FAERS Safety Report 4980152-5 (Version None)
Quarter: 2006Q2

REPORT INFORMATION
  Report Type: 
  Country: None (occurrence: None)
  Receive Date: 20060421
  Receipt Date: 20060104
  Transmission Date: 20061013
  Serious: Yes (Hospitalization, Disabling)
  Sender: FDA-Public Use
  Company Number: US-MERCK-0601USA00346

PATIENT
  Age: 49 Year
  Sex: Female
  Weight: 100 kg

DRUGS (6)
  1. VIOXX [Suspect]
     Indication: ARTHRITIS
     Route: 048
     Dates: start: 20010101, end: 20030101
  2. ADVAIR DISKUS 100/50 [Concomitant]
     Indication: ASTHMA
     Route: 065
  3. COMBIVENT [Concomitant]
     Indication: ASTHMA
     Route: 065
  4. OS-CAL [Concomitant]
     Route: 065
  5. ZANTAC [Concomitant]
     Route: 065
  6. MIACALCIN [Concomitant]
     Route: 065

REACTIONS (4)
  - EMOTIONAL DISTRESS [None]
  - GASTRIC DISORDER [None]
  - MAJOR DEPRESSION [None]
  - MYOCARDIAL INFARCTION [None]
